FAERS Safety Report 9357529 (Version 1)
Quarter: 2013Q2

REPORT INFORMATION
  Report Type: Spontaneous
  Country: US (occurrence: None)
  Receive Date: 20130617
  Receipt Date: 20130617
  Transmission Date: 20140414
  Serious: Yes (Death)
  Sender: FDA-Public Use
  Company Number: FK201301988

PATIENT
  Age: 50 Year
  Sex: Male

DRUGS (2)
  1. PROPOFOL [Suspect]
     Indication: SEDATION
     Dosage: INTRAVENOUS (NOT OTHERWISE SPECIFIED)?
     Route: 042
  2. ANTIBIOTICS (ANTIBIOTICS) (ANTIBIOTICS) [Concomitant]

REACTIONS (5)
  - Pulmonary oedema [None]
  - Lactic acidosis [None]
  - Renal failure acute [None]
  - Ventricular fibrillation [None]
  - Therapy change [None]
